FAERS Safety Report 10265340 (Version 1)
Quarter: 2014Q2

REPORT INFORMATION
  Report Type: Spontaneous
  Country: US (occurrence: US)
  Receive Date: 20140627
  Receipt Date: 20140627
  Transmission Date: 20141212
  Serious: No
  Sender: FDA-Public Use
  Company Number: US-GLAXOSMITHKLINE-A1066527A

PATIENT
  Age: 50 Year
  Sex: Male

DRUGS (12)
  1. MEKINIST [Suspect]
     Indication: METASTATIC MALIGNANT MELANOMA
     Dosage: 2MG PER DAY
     Route: 048
     Dates: start: 20140117, end: 20140324
  2. TAFINLAR [Suspect]
     Indication: METASTATIC MALIGNANT MELANOMA
     Dosage: 150MG TWICE PER DAY
     Route: 048
     Dates: start: 20140117, end: 20140324
  3. CELEBREX [Concomitant]
  4. CELEXA [Concomitant]
  5. NEURONTIN [Concomitant]
  6. KEPPRA [Concomitant]
  7. ATIVAN [Concomitant]
  8. MECLIZINE [Concomitant]
  9. METHADONE [Concomitant]
  10. PERCOCET [Concomitant]
  11. COMPAZINE [Concomitant]
  12. AMBIEN [Concomitant]

REACTIONS (2)
  - Arthralgia [Recovering/Resolving]
  - Disease progression [Not Recovered/Not Resolved]
